FAERS Safety Report 20198412 (Version 1)
Quarter: 2021Q4

REPORT INFORMATION
  Report Type: Spontaneous
  Country: US (occurrence: None)
  Receive Date: 20211216
  Receipt Date: 20211216
  Transmission Date: 20220304
  Serious: No
  Sender: FDA-Public Use
  Company Number: None

PATIENT
  Age: 42 Year
  Sex: Female
  Weight: 65.25 kg

DRUGS (1)
  1. REGEN-COV [Suspect]
     Active Substance: CASIRIVIMAB\IMDEVIMAB
     Indication: Exposure to SARS-CoV-2
     Dates: start: 20211216, end: 20211216

REACTIONS (4)
  - Hypotension [None]
  - Erythema [None]
  - Skin tightness [None]
  - Hyperhidrosis [None]

NARRATIVE: CASE EVENT DATE: 20211216
